FAERS Safety Report 5130521-8 (Version None)
Quarter: 2006Q4

REPORT INFORMATION
  Report Type: 
  Country: None (occurrence: None)
  Receive Date: 20061013
  Receipt Date: 20060928
  Transmission Date: 20070319
  Serious: Yes (Death)
  Sender: FDA-Public Use
  Company Number: US200609007296

PATIENT
  Age: 60 Year
  Sex: Male

DRUGS (1)
  1. XIGRIS [Suspect]
     Indication: SEPSIS
     Dosage: 96 HOURS, OTHER, INTRAVENOUS
     Route: 042
     Dates: start: 20060801

REACTIONS (1)
  - HAEMORRHAGE [None]
